FAERS Safety Report 6193964-X (Version None)
Quarter: 2009Q2

REPORT INFORMATION
  Report Type: 
  Country: None (occurrence: None)
  Receive Date: 20090518
  Receipt Date: 20090508
  Transmission Date: 20091009
  Serious: Yes (Other)
  Sender: FDA-Public Use
  Company Number: PHHY2009JP17725

PATIENT
  Age: 84 Year
  Sex: Male

DRUGS (1)
  1. VOLTAREN [Suspect]
     Indication: TOOTHACHE
     Dosage: 25MG PER DAY
     Route: 048

REACTIONS (2)
  - BLADDER CATHETERISATION [None]
  - URINE OUTPUT DECREASED [None]
